FAERS Safety Report 5213090-3 (Version None)
Quarter: 2007Q1

REPORT INFORMATION
  Report Type: 
  Country: None (occurrence: None)
  Receive Date: 20070119
  Receipt Date: 20070110
  Transmission Date: 20070707
  Serious: Yes (Other)
  Sender: FDA-Public Use
  Company Number: US-ROCHE-477709

PATIENT
  Age: 74 Year
  Sex: Female
  Weight: 76.2 kg

DRUGS (4)
  1. BONIVA [Suspect]
     Indication: OSTEOPOROSIS
     Route: 048
     Dates: start: 20050915
  2. THYROID TAB [Concomitant]
     Indication: HYPOTHYROIDISM
  3. VITAMINS NOS [Concomitant]
  4. CALTRATE [Concomitant]

REACTIONS (3)
  - CHEST X-RAY ABNORMAL [None]
  - LUNG NEOPLASM [None]
  - OSTEOCHONDROMA [None]
